FAERS Safety Report 12054741 (Version 1)
Quarter: 2016Q1

REPORT INFORMATION
  Report Type: Spontaneous
  Country: FR (occurrence: FR)
  Receive Date: 20160209
  Receipt Date: 20160209
  Transmission Date: 20160526
  Serious: Yes (Hospitalization, Other)
  Sender: FDA-Public Use
  Company Number: FR-ASTRAZENECA-2016SE12724

PATIENT
  Sex: Female
  Weight: 2 kg

DRUGS (6)
  1. KEPPRA [Suspect]
     Active Substance: LEVETIRACETAM
     Route: 064
     Dates: start: 20150222, end: 20151001
  2. XEROQUEL [Suspect]
     Active Substance: QUETIAPINE FUMARATE
     Route: 064
     Dates: start: 20150222, end: 20151001
  3. STILNOX [Suspect]
     Active Substance: ZOLPIDEM TARTRATE
     Route: 064
     Dates: start: 20150222, end: 20151001
  4. TERCIAN [Suspect]
     Active Substance: CYAMEMAZINE
     Route: 064
     Dates: start: 20150222, end: 20151001
  5. LAMICTAL [Suspect]
     Active Substance: LAMOTRIGINE
     Route: 064
     Dates: start: 20150222, end: 20151001
  6. ZOLOFT [Suspect]
     Active Substance: SERTRALINE HYDROCHLORIDE
     Route: 064
     Dates: start: 20150222, end: 20151001

REACTIONS (3)
  - Respiratory distress [Recovered/Resolved]
  - Amniotic cavity infection [Unknown]
  - Premature baby [Recovered/Resolved]

NARRATIVE: CASE EVENT DATE: 20151001
